APPROVED DRUG PRODUCT: DEXTROSE 5% AND SODIUM CHLORIDE 0.2% IN PLASTIC CONTAINER
Active Ingredient: DEXTROSE; SODIUM CHLORIDE
Strength: 5GM/100ML;200MG/100ML
Dosage Form/Route: INJECTABLE;INJECTION
Application: N018030 | Product #004
Applicant: B BRAUN MEDICAL INC
Approved: Approved Prior to Jan 1, 1982 | RLD: No | RS: No | Type: DISCN